FAERS Safety Report 4957900-3 (Version None)
Quarter: 2006Q1

REPORT INFORMATION
  Report Type: 
  Country: None (occurrence: None)
  Receive Date: 20060127
  Receipt Date: 20050803
  Transmission Date: 20060701
  Serious: Yes (Death)
  Sender: FDA-Public Use
  Company Number: 05-08-1367

PATIENT
  Age: 84 Year
  Sex: Male

DRUGS (1)
  1. CLOZAPINE [Suspect]
     Indication: SCHIZOPHRENIA
     Dosage: 50MG QD, ORAL
     Route: 048
     Dates: start: 20050101, end: 20050701

REACTIONS (1)
  - PRE-EXISTING DISEASE [None]
